FAERS Safety Report 4302885-6 (Version None)
Quarter: 2004Q1

REPORT INFORMATION
  Report Type: 
  Country: None (occurrence: None)
  Receive Date: 20040223
  Receipt Date: 20040223
  Transmission Date: 20041129
  Serious: No
  Sender: FDA-Public Use
  Company Number: None

PATIENT
  Sex: Male
  Weight: 43 kg

DRUGS (1)
  1. PROTOPIC [Suspect]
     Indication: GRAFT VERSUS HOST DISEASE
     Dosage: BID TOPICAL
     Route: 061
     Dates: start: 20040106, end: 20040107

REACTIONS (5)
  - ABASIA [None]
  - APPLICATION SITE ERYTHEMA [None]
  - APPLICATION SITE EXCORIATION [None]
  - APPLICATION SITE IRRITATION [None]
  - APPLICATION SITE PAIN [None]
